FAERS Safety Report 6676429-8 (Version None)
Quarter: 2010Q2

REPORT INFORMATION
  Report Type: 
  Country: None (occurrence: None)
  Receive Date: 20100412
  Receipt Date: 20100331
  Transmission Date: 20101027
  Serious: Yes (Hospitalization, Other)
  Sender: FDA-Public Use
  Company Number: PHHY2010IE18053

PATIENT
  Sex: Female

DRUGS (5)
  1. CLOZARIL [Suspect]
     Indication: SCHIZOPHRENIA
     Dosage: UNK
     Dates: start: 20050511
  2. ASPIRIN [Concomitant]
  3. EPILIM CHRONO [Concomitant]
     Indication: MYOCLONUS
     Dosage: 600 MG
     Route: 048
     Dates: start: 20051101
  4. EPILIM CHRONO [Concomitant]
     Indication: AFFECTIVE DISORDER
  5. LIPITOR [Concomitant]
     Indication: BLOOD CHOLESTEROL INCREASED
     Dosage: UNK
     Route: 048
     Dates: start: 20090701, end: 20100301

REACTIONS (3)
  - BLOOD CHOLESTEROL INCREASED [None]
  - TRANSIENT ISCHAEMIC ATTACK [None]
  - WEIGHT DECREASED [None]
